FAERS Safety Report 10180275 (Version 2)
Quarter: 2014Q2

REPORT INFORMATION
  Report Type: Spontaneous
  Country: US (occurrence: US)
  Receive Date: 20140519
  Receipt Date: 20140519
  Transmission Date: 20141212
  Serious: No
  Sender: FDA-Public Use
  Company Number: US-AMGEN INC.-USASP2013078230

PATIENT
  Age: 64 Year
  Sex: Female
  Weight: 69.39 kg

DRUGS (8)
  1. PROLIA [Suspect]
     Indication: OSTEOPOROSIS POSTMENOPAUSAL
     Dosage: 60 MG, UNK
     Route: 058
     Dates: start: 20130812
  2. CALCIUM PLUS VITAMIN D [Concomitant]
     Dosage: UNK UNK, QD
     Route: 065
  3. CELEBREX [Concomitant]
     Dosage: 200 MG, UNK
     Route: 065
  4. DEXILANT [Concomitant]
     Dosage: 60 MG, QD
     Route: 065
  5. CARAFATE [Concomitant]
     Dosage: 1 G, UNK
     Route: 065
  6. OMEGA 3                            /01333901/ [Concomitant]
     Dosage: UNK
     Route: 065
  7. VICODIN [Concomitant]
     Indication: ARTHRALGIA
     Dosage: UNK
     Route: 065
  8. AMBIEN [Concomitant]
     Dosage: UNK
     Route: 065

REACTIONS (6)
  - Influenza like illness [Unknown]
  - Abdominal pain upper [Unknown]
  - Bone pain [Unknown]
  - Back pain [Unknown]
  - Myalgia [Unknown]
  - Arthralgia [Unknown]
